FAERS Safety Report 9510077 (Version 1)
Quarter: 2013Q3

REPORT INFORMATION
  Report Type: Spontaneous
  Country: US (occurrence: US)
  Receive Date: 20130909
  Receipt Date: 20130909
  Transmission Date: 20140515
  Serious: No
  Sender: FDA-Public Use
  Company Number: US-BRISTOL-MYERS SQUIBB COMPANY-17125915

PATIENT
  Age: 31 Year
  Sex: Male
  Weight: 90.7 kg

DRUGS (3)
  1. ABILIFY [Suspect]
  2. RISPERDAL [Suspect]
  3. PERAZINE [Suspect]

REACTIONS (2)
  - Malaise [Unknown]
  - Abdominal pain upper [Unknown]
